FAERS Safety Report 4602224-7 (Version None)
Quarter: 2005Q2

REPORT INFORMATION
  Report Type: 
  Country: None (occurrence: None)
  Receive Date: 20050215
  Receipt Date: 20040727
  Transmission Date: 20051028
  Serious: Yes (Hospitalization)
  Sender: FDA-Public Use
  Company Number: 2004IM000773

PATIENT
  Age: 79 Year
  Sex: Male
  Weight: 117.9352 kg

DRUGS (18)
  1. ACTIMMUNE [Suspect]
     Indication: INTERSTITIAL LUNG DISEASE
     Dosage: 200 UG;TIW;SUBCUTANEOUS
     Route: 058
     Dates: start: 20040301
  2. ACETYLSALICYLIC ACID SRT [Concomitant]
  3. BENADRYL [Concomitant]
  4. IMDUR [Concomitant]
  5. CARDIA CD [Concomitant]
  6. HYTRIN [Concomitant]
  7. TOPROL-XL [Concomitant]
  8. AMARYL [Concomitant]
  9. INSULIN [Concomitant]
  10. NEURONTIN [Concomitant]
  11. ATACAND [Concomitant]
  12. ZOCOR [Concomitant]
  13. AXID [Concomitant]
  14. NIASPAN [Concomitant]
  15. ELAVIL [Concomitant]
  16. MULTI-VITAMINS [Concomitant]
  17. NITROGLYCERIN [Concomitant]
  18. OXYGEN [Concomitant]

REACTIONS (4)
  - CHEST PAIN [None]
  - CHILLS [None]
  - DYSPNOEA EXERTIONAL [None]
  - PYREXIA [None]
